FAERS Safety Report 8973107 (Version 1)
Quarter: 2012Q4

REPORT INFORMATION
  Report Type: 
  Country: DE (occurrence: DE)
  Receive Date: 20121219
  Receipt Date: 20121219
  Transmission Date: 20130627
  Serious: Yes (Hospitalization)
  Sender: FDA-Public Use
  Company Number: DE-ELI_LILLY_AND_COMPANY-DE201212001989

PATIENT
  Age: 83 Year
  Sex: Female

DRUGS (5)
  1. FORSTEO [Suspect]
     Indication: OSTEOPOROSIS
     Dosage: UNK, qd
     Route: 058
     Dates: start: 20111107
  2. SIFROL [Concomitant]
     Dosage: UNK, each evening
     Route: 065
  3. BROMAZEPAM [Concomitant]
     Dosage: 0.5 DF, qd
     Route: 065
  4. MAGNESIUM VERLA                    /00648601/ [Concomitant]
     Dosage: UNK, unknown
     Route: 065
  5. CALCICARE D3 [Concomitant]
     Dosage: UNK, unknown
     Route: 065

REACTIONS (1)
  - Cervical vertebral fracture [Not Recovered/Not Resolved]
